FAERS Safety Report 7725833-5 (Version None)
Quarter: 2011Q3

REPORT INFORMATION
  Report Type: 
  Country: None (occurrence: None)
  Receive Date: 20110902
  Receipt Date: 20110819
  Transmission Date: 20111222
  Serious: No
  Sender: FDA-Public Use
  Company Number: US-B.I. PHARMACEUTICALS,INC./RIDGEFIELD-2011-BP-18417BP

PATIENT
  Sex: Male

DRUGS (14)
  1. DILTIAZEM [Concomitant]
     Indication: ATRIAL FIBRILLATION
     Route: 048
  2. SIMVASTATIN [Concomitant]
     Indication: BLOOD CHOLESTEROL INCREASED
     Route: 048
  3. LEVAQUIN [Concomitant]
  4. ASPIRIN [Concomitant]
     Indication: ROUTINE HEALTH MAINTENANCE
     Dosage: 81 MG
     Route: 048
  5. ZYRTEC [Concomitant]
     Indication: HYPERSENSITIVITY
     Route: 048
  6. HYDROCHLOROTHIAZIDE [Concomitant]
     Indication: ATRIAL FIBRILLATION
     Dosage: 85 MG
     Route: 048
  7. SPIRIVA [Suspect]
     Indication: CHRONIC OBSTRUCTIVE PULMONARY DISEASE
     Route: 055
     Dates: start: 20110718
  8. ACTOS [Concomitant]
     Indication: DIABETES MELLITUS
     Dosage: 30 MG
     Route: 048
  9. LANTUS [Concomitant]
     Indication: DIABETES MELLITUS
  10. GENTEAL [Concomitant]
     Indication: ROUTINE HEALTH MAINTENANCE
     Route: 048
  11. MUCINEX [Concomitant]
  12. ADVAIR DISKUS 100/50 [Concomitant]
  13. COMBIVENT [Concomitant]
     Indication: CHRONIC OBSTRUCTIVE PULMONARY DISEASE
  14. SYMBICORT [Concomitant]

REACTIONS (1)
  - CHRONIC OBSTRUCTIVE PULMONARY DISEASE [None]
